FAERS Safety Report 6782072-2 (Version None)
Quarter: 2010Q2

REPORT INFORMATION
  Report Type: 
  Country: None (occurrence: None)
  Receive Date: 20100621
  Receipt Date: 20100615
  Transmission Date: 20101027
  Serious: Yes (Hospitalization)
  Sender: FDA-Public Use
  Company Number: B0660676A

PATIENT
  Sex: Female

DRUGS (15)
  1. AUGMENTIN '125' [Suspect]
     Indication: INFECTION
     Dosage: 1G THREE TIMES PER DAY
     Route: 048
     Dates: start: 20100223, end: 20100302
  2. XANAX [Suspect]
     Indication: ANXIETY
     Dosage: .5MG SEE DOSAGE TEXT
     Route: 048
     Dates: start: 20100210, end: 20100225
  3. CRESTOR [Suspect]
     Dosage: 5MG PER DAY
     Route: 048
     Dates: end: 20100224
  4. LEXOMIL [Suspect]
     Indication: ANXIETY
     Route: 048
     Dates: start: 20100210, end: 20100304
  5. DOLIPRANE [Suspect]
     Indication: PAIN
     Dosage: 4000MG PER DAY
     Route: 048
     Dates: start: 20100210, end: 20100304
  6. TAREG [Concomitant]
     Route: 065
  7. ZOLPIDEM [Concomitant]
     Route: 065
  8. DEROXAT [Concomitant]
     Route: 065
  9. AMLOR [Concomitant]
     Route: 065
  10. LOVENOX [Concomitant]
     Route: 065
     Dates: start: 20100210
  11. ZOPHREN [Concomitant]
     Route: 065
     Dates: end: 20100224
  12. NEXIUM [Concomitant]
     Route: 065
     Dates: start: 20100219
  13. TARDYFERON [Concomitant]
     Route: 065
     Dates: start: 20100220
  14. FORLAX [Concomitant]
     Route: 065
     Dates: start: 20100223
  15. DIFFU K [Concomitant]
     Route: 065
     Dates: start: 20100225

REACTIONS (8)
  - FACE OEDEMA [None]
  - HAEMATOCHEZIA [None]
  - NORMOCHROMIC NORMOCYTIC ANAEMIA [None]
  - PRURITUS [None]
  - PYREXIA [None]
  - RASH MACULO-PAPULAR [None]
  - TRANSFERRIN SATURATION DECREASED [None]
  - URTICARIA [None]
